FAERS Safety Report 15659108 (Version 2)
Quarter: 2019Q1

REPORT INFORMATION
  Report Type: Spontaneous
  Country: DK (occurrence: DK)
  Receive Date: 20181127
  Receipt Date: 20190208
  Transmission Date: 20190417
  Serious: Yes (Life-Threatening, Hospitalization, Disabling)
  Sender: FDA-Public Use
  Company Number: DK-SA-2018SA320276

PATIENT
  Age: 46 Year
  Sex: Male

DRUGS (20)
  1. BETNOVAT [BETAMETHASONE VALERATE] [Concomitant]
     Indication: ECZEMA
     Dosage: 1 DF, PRN
     Route: 061
     Dates: start: 20180509
  2. LOCOID [Concomitant]
     Active Substance: HYDROCORTISONE BUTYRATE
     Indication: ECZEMA
     Dosage: 2 DF, QD
     Route: 061
  3. CALCIUM CARBONATE W/COLECALCIFEROL [Concomitant]
     Active Substance: CALCIUM CARBONATE\CHOLECALCIFEROL
     Indication: MINERAL SUPPLEMENTATION
     Dosage: 1 DF QD
     Route: 048
     Dates: start: 2014
  4. FUCICORT [Concomitant]
     Active Substance: BETAMETHASONE VALERATE\FUSIDIC ACID
     Indication: ECZEMA
     Dosage: STYRKE: 1+20 MG/G
     Route: 061
     Dates: start: 20180816
  5. KETOCONAZOLE. [Concomitant]
     Active Substance: KETOCONAZOLE
     Indication: DANDRUFF
     Dosage: 1 DF, PRN
     Route: 061
     Dates: start: 2015
  6. VENTOLINE [SALBUTAMOL] [Concomitant]
     Active Substance: ALBUTEROL SULFATE
     Indication: ASTHMA
     Dosage: 1 DF, PRN
     Route: 055
  7. DERMOVAT [CLOBETASOL PROPIONATE] [Concomitant]
     Indication: ECZEMA
     Dosage: 2 DF, QD
     Route: 061
  8. SINGULAIR [Concomitant]
     Active Substance: MONTELUKAST SODIUM
     Indication: ASTHMA
     Dosage: 20 MG, QD
     Route: 048
     Dates: start: 2006
  9. DYMISTA [Concomitant]
     Active Substance: AZELASTINE HYDROCHLORIDE\FLUTICASONE PROPIONATE
     Indication: RHINITIS ALLERGIC
     Dosage: STYRKE: 1000+365 MIKROGRAM
     Route: 045
     Dates: start: 201705
  10. EKLIRA GENUAIR [Concomitant]
     Active Substance: ACLIDINIUM BROMIDE
     Indication: ASTHMA
     Dosage: 2 DF, QD
     Route: 055
     Dates: start: 20180327
  11. FOLIMET [Concomitant]
     Active Substance: FOLIC ACID
     Indication: FOLATE DEFICIENCY
     Dosage: 5 MG, QD
     Route: 048
     Dates: start: 2013
  12. CLOBEX [CLOBETASOL PROPIONATE] [Concomitant]
     Indication: ECZEMA
     Dosage: 1 DF, PRN
     Route: 061
     Dates: start: 20151102
  13. DUPIXENT [Suspect]
     Active Substance: DUPILUMAB
     Indication: ECZEMA
     Dosage: 300 MG
     Route: 058
     Dates: start: 20180509
  14. ELIDEL [Concomitant]
     Active Substance: PIMECROLIMUS
     Indication: ECZEMA
     Dosage: 3 DF, QD
     Route: 061
     Dates: start: 20180509
  15. MELATONIN [Concomitant]
     Active Substance: MELATONIN
     Indication: INSOMNIA
     Dosage: STRENGTH: 3 MG
     Route: 048
     Dates: start: 2016
  16. FEXOFENADINE [Concomitant]
     Active Substance: FEXOFENADINE\FEXOFENADINE HYDROCHLORIDE
     Indication: HYPERSENSITIVITY
     Dosage: 360 MG, QD
     Route: 048
     Dates: start: 2015
  17. OPATANOL [Concomitant]
     Active Substance: OLOPATADINE
     Indication: CONJUNCTIVITIS ALLERGIC
     Dosage: STRENGTH: 1 MG/ML
     Route: 050
     Dates: start: 2014
  18. PAMOL [Concomitant]
     Active Substance: ACETAMINOPHEN
     Indication: PAIN
     Dosage: STYRKE: 500 MG.
     Route: 048
     Dates: start: 2016
  19. FLUTIFORM [Concomitant]
     Active Substance: FLUTICASONE PROPIONATE\FORMOTEROL FUMARATE
     Indication: ASTHMA
     Dosage: 4 DF, QD
     Dates: start: 201705
  20. LOSARTANKALIUM [Concomitant]
     Active Substance: LOSARTAN
     Indication: HYPERTENSION
     Dosage: 100 MG, QD
     Route: 048
     Dates: start: 2013

REACTIONS (10)
  - Eye pruritus [Not Recovered/Not Resolved]
  - Eczema [Not Recovered/Not Resolved]
  - Vision blurred [Not Recovered/Not Resolved]
  - Eye discharge [Not Recovered/Not Resolved]
  - Foreign body sensation in eyes [Not Recovered/Not Resolved]
  - Ocular hyperaemia [Not Recovered/Not Resolved]
  - Stoma closure [Recovered/Resolved]
  - Keratopathy [Not Recovered/Not Resolved]
  - Lacrimation increased [Not Recovered/Not Resolved]
  - Sebaceous gland disorder [Not Recovered/Not Resolved]

NARRATIVE: CASE EVENT DATE: 201806
